FAERS Safety Report 6272563-5 (Version None)
Quarter: 2009Q3

REPORT INFORMATION
  Report Type: 
  Country: None (occurrence: None)
  Receive Date: 20090717
  Receipt Date: 20090710
  Transmission Date: 20100115
  Serious: Yes (Other)
  Sender: FDA-Public Use
  Company Number: PHMT2007CA01648

PATIENT
  Sex: Female

DRUGS (1)
  1. SANDOSTATIN LAR [Suspect]
     Dosage: 10MG EVERY 4 WEEKS
     Route: 030
     Dates: start: 20060530

REACTIONS (1)
  - DEPRESSED MOOD [None]
